FAERS Safety Report 7380001-4 (Version None)
Quarter: 2011Q1

REPORT INFORMATION
  Report Type: 
  Country: None (occurrence: None)
  Receive Date: 20110318
  Receipt Date: 20110315
  Transmission Date: 20110831
  Serious: Yes (Death)
  Sender: FDA-Public Use
  Company Number: 2011SP011633

PATIENT
  Age: 1 Day
  Sex: Male
  Weight: 2 kg

DRUGS (2)
  1. MORFINE (MORPHINE) [Suspect]
     Indication: ENDOTRACHEAL INTUBATION
     Dosage: 0.18 MG
     Dates: start: 20100924
  2. NORCURON (VECURONIUM BROMIDE /00600002/) (10 MG) [Suspect]
     Indication: ENDOTRACHEAL INTUBATION
     Dosage: 0.18 MG
     Dates: start: 20100924

REACTIONS (1)
  - BRONCHOSPASM [None]
